FAERS Safety Report 5109366-0 (Version None)
Quarter: 2006Q3

REPORT INFORMATION
  Report Type: 
  Country: None (occurrence: None)
  Receive Date: 20060920
  Receipt Date: 20060915
  Transmission Date: 20061208
  Serious: Yes (Life-Threatening, Hospitalization)
  Sender: FDA-Public Use
  Company Number: PHBS2006JP14139

PATIENT
  Age: 77 Year
  Sex: Female

DRUGS (3)
  1. GLEEVEC [Suspect]
     Indication: CHRONIC MYELOID LEUKAEMIA
     Dosage: 400 MG/DAY
     Route: 048
     Dates: start: 20020417
  2. RENIVACE [Concomitant]
     Dosage: 5 MG/D
     Route: 048
     Dates: start: 20010101
  3. NORVASC [Concomitant]
     Dosage: 5 MG/DAY
     Route: 048
     Dates: start: 20010417

REACTIONS (3)
  - ATRIOVENTRICULAR BLOCK [None]
  - CARDIAC PACEMAKER INSERTION [None]
  - SYNCOPE [None]
